FAERS Safety Report 16230328 (Version 2)
Quarter: 2019Q3

REPORT INFORMATION
  Report Type: Report from Study
  Country: US (occurrence: US)
  Receive Date: 20190423
  Receipt Date: 20190920
  Transmission Date: 20191004
  Serious: Yes (Hospitalization, Other)
  Sender: FDA-Public Use
  Company Number: US-GILEAD-2019-0403879

PATIENT
  Age: 63 Year
  Sex: Female

DRUGS (2)
  1. AMBRISENTAN [Suspect]
     Active Substance: AMBRISENTAN
     Indication: PULMONARY HYPERTENSION
     Dosage: 10 MG, QD
     Route: 065
     Dates: start: 20180730
  2. ARANESP [Suspect]
     Active Substance: DARBEPOETIN ALFA
     Indication: HAEMOGLOBIN DECREASED
     Dosage: UNK
     Route: 065
     Dates: start: 201909

REACTIONS (2)
  - Haemoglobin decreased [Unknown]
  - Loss of consciousness [Unknown]

NARRATIVE: CASE EVENT DATE: 201903
